FAERS Safety Report 5276825-X (Version None)
Quarter: 2007Q1

REPORT INFORMATION
  Report Type: 
  Country: None (occurrence: None)
  Receive Date: 20070327
  Receipt Date: 20070321
  Transmission Date: 20070707
  Serious: Yes (Other)
  Sender: FDA-Public Use
  Company Number: US-BRISTOL-MYERS SQUIBB COMPANY-13721170

PATIENT
  Age: 39 Year
  Sex: Male

DRUGS (8)
  1. DEFINITY [Suspect]
     Indication: ECHOCARDIOGRAM
     Route: 042
  2. PLAVIX [Concomitant]
  3. ASPIRIN [Concomitant]
  4. ZOCOR [Concomitant]
  5. TOPROL-XL [Concomitant]
  6. ZESTRIL [Concomitant]
  7. NIACIN [Concomitant]
  8. FISH OIL [Concomitant]

REACTIONS (2)
  - BACK PAIN [None]
  - MONOPLEGIA [None]
